FAERS Safety Report 6899495-3 (Version None)
Quarter: 2010Q3

REPORT INFORMATION
  Report Type: 
  Country: None (occurrence: None)
  Receive Date: 20100803
  Receipt Date: 20100727
  Transmission Date: 20110219
  Serious: Yes (Death)
  Sender: FDA-Public Use
  Company Number: US-BIOGENIDEC-2010BI023621

PATIENT
  Age: 75 Year
  Sex: Female

DRUGS (14)
  1. AVONEX [Suspect]
     Indication: MULTIPLE SCLEROSIS
     Route: 030
     Dates: start: 20040701
  2. ALPRAZOLAM [Concomitant]
  3. ASPIRIN [Concomitant]
  4. AXID [Concomitant]
  5. BACLOFEN [Concomitant]
  6. VITAMIN D [Concomitant]
  7. CALCIUM [Concomitant]
  8. DETROL LA [Concomitant]
  9. LASIX [Concomitant]
  10. MULTI-VITAMIN [Concomitant]
  11. SIMVASTATIN [Concomitant]
  12. TYLENOL [Concomitant]
  13. SOLU-MEDROL [Concomitant]
  14. SENOKOT [Concomitant]

REACTIONS (4)
  - DYSLIPIDAEMIA [None]
  - MUSCLE SPASTICITY [None]
  - MYOCARDIAL INFARCTION [None]
  - PROGRESSIVE MULTIPLE SCLEROSIS [None]
